FAERS Safety Report 15571198 (Version 4)
Quarter: 2018Q4

REPORT INFORMATION
  Report Type: Spontaneous
  Country: JP (occurrence: JP)
  Receive Date: 20181031
  Receipt Date: 20181230
  Transmission Date: 20190205
  Serious: Yes (Other)
  Sender: FDA-Public Use
  Company Number: JP-BEH-2018096194

PATIENT
  Age: 13 Year
  Sex: Male
  Weight: 52 kg

DRUGS (9)
  1. IDELVION [Suspect]
     Active Substance: COAGULATION FACTOR IX RECOMBINANT HUMAN
     Indication: ARTHRALGIA
     Dosage: 2500 IU, TOT
     Route: 042
     Dates: start: 20181102, end: 20181102
  2. IDELVION [Suspect]
     Active Substance: COAGULATION FACTOR IX RECOMBINANT HUMAN
     Indication: PROPHYLAXIS
     Dosage: 2500 IU, QW
     Route: 042
     Dates: start: 20181022, end: 20181029
  3. IDELVION [Suspect]
     Active Substance: COAGULATION FACTOR IX RECOMBINANT HUMAN
     Indication: SURGERY
     Dosage: 2500 IU, TOT
     Route: 042
     Dates: start: 20181114, end: 20181114
  4. IDELVION [Suspect]
     Active Substance: COAGULATION FACTOR IX RECOMBINANT HUMAN
     Dosage: 2500 IU, QW
     Route: 042
  5. IDELVION [Suspect]
     Active Substance: COAGULATION FACTOR IX RECOMBINANT HUMAN
     Indication: ARTHRALGIA
     Dosage: 2500 IU, TOT
     Route: 042
     Dates: start: 20181109, end: 20181109
  6. NOVACT M FUJISAWA [Concomitant]
     Route: 065
  7. IDELVION [Suspect]
     Active Substance: COAGULATION FACTOR IX RECOMBINANT HUMAN
     Indication: CONTUSION
     Dosage: 2500 IU, TOT
     Route: 042
     Dates: start: 20181025, end: 20181025
  8. IDELVION [Suspect]
     Active Substance: COAGULATION FACTOR IX RECOMBINANT HUMAN
     Indication: FACTOR IX DEFICIENCY
     Dosage: 2500 IU, UNK
     Route: 042
     Dates: start: 201807
  9. IDELVION [Suspect]
     Active Substance: COAGULATION FACTOR IX RECOMBINANT HUMAN
     Indication: HAEMOSTASIS
     Dosage: 2500 IU, QW (EVERY SIX DAYS)
     Route: 042
     Dates: start: 20180920, end: 20181002

REACTIONS (4)
  - Swelling [Unknown]
  - Drug ineffective [Recovering/Resolving]
  - Purpura [Recovered/Resolved]
  - Haemorrhage subcutaneous [Unknown]

NARRATIVE: CASE EVENT DATE: 20181025
